FAERS Safety Report 4964191-6 (Version None)
Quarter: 2006Q2

REPORT INFORMATION
  Report Type: 
  Country: None (occurrence: None)
  Receive Date: 20060404
  Receipt Date: 20060404
  Transmission Date: 20061013
  Serious: Yes (Hospitalization, Other)
  Sender: FDA-Public Use
  Company Number: None

PATIENT
  Sex: Female
  Weight: 106.5 kg

DRUGS (2)
  1. CISPLATIN [Suspect]
     Indication: SMALL CELL LUNG CANCER STAGE UNSPECIFIED
     Dosage: 125 MG
     Dates: start: 20060301, end: 20060301
  2. ETOPOSIDE [Suspect]
     Dosage: 750 MG
     Dates: start: 20060301, end: 20060303

REACTIONS (4)
  - COUGH [None]
  - FEBRILE NEUTROPENIA [None]
  - ODYNOPHAGIA [None]
  - WHITE BLOOD CELL COUNT DECREASED [None]
